FAERS Safety Report 4394111-7 (Version None)
Quarter: 2004Q3

REPORT INFORMATION
  Report Type: 
  Country: None (occurrence: None)
  Receive Date: 20040705
  Receipt Date: 20040629
  Transmission Date: 20050211
  Serious: Yes (Other)
  Sender: FDA-Public Use
  Company Number: 200310802BCA

PATIENT
  Sex: Female

DRUGS (11)
  1. GAMIMUNE N 10% [Suspect]
     Dosage: 40 G, TOTAL DAILY, INTRAVENOUS; SEE IMAGE
     Route: 042
     Dates: start: 20030515
  2. GAMIMUNE N 10% [Suspect]
     Dosage: 40 G, TOTAL DAILY, INTRAVENOUS; SEE IMAGE
     Route: 042
     Dates: start: 20030516
  3. GAMIMUNE N 10% [Suspect]
     Dosage: 40 G, TOTAL DAILY, INTRAVENOUS; SEE IMAGE
     Route: 042
     Dates: start: 20030604
  4. GAMIMUNE N 10% [Suspect]
     Dosage: 40 G, TOTAL DAILY, INTRAVENOUS; SEE IMAGE
     Route: 042
     Dates: start: 20030606
  5. GAMIMUNE N [Suspect]
  6. GAMIMUNE N [Suspect]
  7. GAMIMUNE N [Suspect]
  8. GAMIMUNE N [Suspect]
  9. GAMIMUNE N [Suspect]
  10. GAMIMUNE N [Suspect]
  11. GAMIMUNE N [Suspect]

REACTIONS (1)
  - HIV TEST POSITIVE [None]
